FAERS Safety Report 5460500-2 (Version None)
Quarter: 2007Q3

REPORT INFORMATION
  Report Type: 
  Country: None (occurrence: None)
  Receive Date: 20070919
  Receipt Date: 20070914
  Transmission Date: 20080115
  Serious: Yes (Hospitalization)
  Sender: FDA-Public Use
  Company Number: DE-SANOFI-SYNTHELABO-F04200700074

PATIENT
  Sex: Male

DRUGS (14)
  1. DOCETAXEL [Suspect]
     Indication: GASTROINTESTINAL CARCINOMA
     Route: 041
     Dates: start: 20070913, end: 20070913
  2. OXALIPLATIN [Suspect]
     Indication: GASTROINTESTINAL CARCINOMA
     Route: 041
     Dates: start: 20070913, end: 20070913
  3. DEXAMETHASONE [Concomitant]
     Indication: DRUG USE FOR UNKNOWN INDICATION
     Route: 065
     Dates: start: 20070830, end: 20070830
  4. DEXAMETHASONE [Concomitant]
     Route: 065
     Dates: start: 20070831, end: 20070831
  5. DEXAMETHASONE [Concomitant]
     Route: 065
     Dates: start: 20070906, end: 20070906
  6. DEXAMETHASONE [Concomitant]
     Route: 065
     Dates: start: 20070907, end: 20070907
  7. TEPILTA [Concomitant]
     Indication: DRUG USE FOR UNKNOWN INDICATION
     Dosage: UNK
     Route: 048
     Dates: start: 20070829, end: 20070907
  8. ULCOGANT [Concomitant]
     Indication: DRUG USE FOR UNKNOWN INDICATION
     Dosage: UNK
     Route: 048
     Dates: start: 20070829, end: 20070907
  9. PROVASIN TAB [Concomitant]
     Indication: DRUG USE FOR UNKNOWN INDICATION
     Dosage: UNK
     Route: 048
     Dates: start: 20070829, end: 20070907
  10. LEVOTHYROXINE SODIUM [Concomitant]
     Indication: DRUG USE FOR UNKNOWN INDICATION
     Route: 048
     Dates: start: 20070829, end: 20070907
  11. OMEPRAZOLE [Concomitant]
     Indication: DRUG USE FOR UNKNOWN INDICATION
     Route: 048
     Dates: start: 20070829, end: 20070907
  12. PROTAPHANE [Concomitant]
     Indication: DRUG USE FOR UNKNOWN INDICATION
     Route: 058
     Dates: start: 20070829, end: 20070907
  13. HUMALOG [Concomitant]
     Indication: DRUG USE FOR UNKNOWN INDICATION
     Route: 058
     Dates: start: 20070829, end: 20070907
  14. ENOXAPARIN SODIUM [Concomitant]
     Indication: DRUG USE FOR UNKNOWN INDICATION
     Route: 048
     Dates: start: 20070829, end: 20070907

REACTIONS (3)
  - DIARRHOEA [None]
  - HYPERTENSION [None]
  - HYPOGLYCAEMIA [None]
